FAERS Safety Report 12656517 (Version 1)
Quarter: 2016Q3

REPORT INFORMATION
  Report Type: Spontaneous
  Country: US (occurrence: US)
  Receive Date: 20160816
  Receipt Date: 20160816
  Transmission Date: 20161109
  Serious: No
  Sender: FDA-Public Use
  Company Number: US-PERRIGO-15US011363

PATIENT
  Sex: Female
  Weight: 63.49 kg

DRUGS (3)
  1. NITETIME FREE CHERRY LIQUID [Concomitant]
     Indication: NASOPHARYNGITIS
  2. LORATADINE. [Suspect]
     Active Substance: LORATADINE
     Indication: PERENNIAL ALLERGY
     Dosage: 10 MG, QD
     Route: 048
  3. NITETIME FREE CHERRY LIQUID [Concomitant]
     Indication: COUGH
     Dosage: 30 ML, QHS
     Route: 048
     Dates: start: 20151020, end: 20151024

REACTIONS (3)
  - Therapeutic response unexpected [Unknown]
  - Off label use [Unknown]
  - No adverse event [Unknown]
